FAERS Safety Report 13209068 (Version 1)
Quarter: 2017Q1

REPORT INFORMATION
  Report Type: Spontaneous
  Country: US (occurrence: US)
  Receive Date: 20170209
  Receipt Date: 20170209
  Transmission Date: 20170428
  Serious: Yes (Other)
  Sender: FDA-Public Use
  Company Number: US-SAGENTPRD-2017-US-000024

PATIENT
  Age: 47 Year
  Sex: Male

DRUGS (2)
  1. VALPROIC ACID. [Concomitant]
     Active Substance: VALPROIC ACID
  2. LEVETIRACETAM INJECTION [Suspect]
     Active Substance: LEVETIRACETAM
     Dosage: 1500 MG Q12H

REACTIONS (5)
  - Asterixis [Unknown]
  - Bradyphrenia [Unknown]
  - Encephalopathy [Unknown]
  - Aphasia [Recovered/Resolved]
  - Fatigue [Recovered/Resolved]
